FAERS Safety Report 6408575-8 (Version None)
Quarter: 2009Q4

REPORT INFORMATION
  Report Type: 
  Country: None (occurrence: None)
  Receive Date: 20091021
  Receipt Date: 20091014
  Transmission Date: 20100525
  Serious: Yes (Other)
  Sender: FDA-Public Use
  Company Number: BE-BAXTER-2008BH001060

PATIENT
  Sex: Male

DRUGS (11)
  1. ANTIHEMOPHILIC FACTOR (HUMAN) [Suspect]
     Indication: FACTOR VIII DEFICIENCY
     Dosage: DOSE UNIT:UNKNOWN
     Route: 065
     Dates: start: 19780401
  2. ANTIHEMOPHILIC FACTOR (HUMAN) [Suspect]
     Dosage: DOSE UNIT:UNKNOWN
     Route: 065
     Dates: start: 19780701
  3. ANTIHEMOPHILIC FACTOR (HUMAN) [Suspect]
     Route: 065
     Dates: start: 19781001
  4. ANTIHEMOPHILIC FACTOR (HUMAN) [Suspect]
     Indication: FACTOR VIII DEFICIENCY
     Dosage: DOSE UNIT:UNKNOWN
     Route: 065
     Dates: start: 19781001, end: 19851001
  5. ANTIHEMOPHILIC FACTOR (HUMAN) [Suspect]
     Indication: HAEMATOMA
     Dosage: DOSE UNIT:UNKNOWN
     Route: 065
     Dates: start: 19781001, end: 19851001
  6. ANTIHEMOPHILIC FACTOR (HUMAN) [Suspect]
     Indication: HAEMATURIA
     Dosage: DOSE UNIT:UNKNOWN
     Route: 065
     Dates: start: 19781001, end: 19851001
  7. ANTIHEMOPHILIC FACTOR (HUMAN) [Suspect]
     Indication: JOINT SPRAIN
     Dosage: DOSE UNIT:UNKNOWN
     Route: 065
     Dates: start: 19781001, end: 19851001
  8. ANTIHEMOPHILIC FACTOR (HUMAN) [Suspect]
     Dosage: DOSE UNIT:UNKNOWN
     Route: 065
     Dates: start: 19780401
  9. ANTIHEMOPHILIC FACTOR (HUMAN) [Suspect]
     Indication: HAEMORRHAGE
     Dosage: DOSE UNIT:UNKNOWN
     Route: 065
     Dates: start: 19780401
  10. ANTIHEMOPHILIC FACTOR (HUMAN) [Suspect]
     Dosage: DOSE UNIT:UNKNOWN
     Route: 065
     Dates: start: 19850101
  11. ANTIHEMOPHILIC FACTOR (HUMAN) [Suspect]
     Dosage: DOSE UNIT:UNKNOWN
     Route: 065
     Dates: start: 19850101

REACTIONS (13)
  - ASTHENIA [None]
  - HAEMATOMA [None]
  - HAEMATURIA [None]
  - HAEMORRHAGE [None]
  - HEPATITIS C [None]
  - HEPATITIS NON-A NON-B [None]
  - HYPERSENSITIVITY [None]
  - HYPOTENSION [None]
  - INFECTIOUS MONONUCLEOSIS [None]
  - JOINT SPRAIN [None]
  - MONOCYTE COUNT INCREASED [None]
  - RASH [None]
  - WHITE BLOOD CELL COUNT INCREASED [None]
